FAERS Safety Report 23820621 (Version 2)
Quarter: 2024Q2

REPORT INFORMATION
  Report Type: Report from Study
  Country: US (occurrence: US)
  Receive Date: 20240506
  Receipt Date: 20240529
  Transmission Date: 20240716
  Serious: Yes (Other)
  Sender: FDA-Public Use
  Company Number: US-UCBSA-2024018892

PATIENT
  Sex: Male

DRUGS (4)
  1. FINTEPLA [Interacting]
     Active Substance: FENFLURAMINE
     Indication: Lennox-Gastaut syndrome
     Dosage: 6 MILLILITER, 2X/DAY (BID)
     Dates: start: 20240319, end: 2024
  2. FINTEPLA [Interacting]
     Active Substance: FENFLURAMINE
     Dosage: 2 MILLILITER
     Dates: start: 2024, end: 20240324
  3. AUGMENTIN [Suspect]
     Active Substance: AMOXICILLIN\CLAVULANATE POTASSIUM
     Indication: Gastrointestinal infection
     Dosage: UNK
     Dates: start: 202404
  4. ZTALMY [Interacting]
     Active Substance: GANAXOLONE
     Indication: Seizure
     Dosage: 2 MILLILITER, 3X/DAY (TID)
     Dates: end: 20240516

REACTIONS (8)
  - Photosensitive seizure [Not Recovered/Not Resolved]
  - Seizure [Not Recovered/Not Resolved]
  - Aspiration [Not Recovered/Not Resolved]
  - Gastrointestinal infection [Not Recovered/Not Resolved]
  - Diarrhoea [Recovered/Resolved]
  - Nausea [Not Recovered/Not Resolved]
  - Drug interaction [Recovered/Resolved]
  - Therapeutic response decreased [Unknown]

NARRATIVE: CASE EVENT DATE: 20240101
